FAERS Safety Report 18513650 (Version 5)
Quarter: 2022Q1

REPORT INFORMATION
  Report Type: Spontaneous
  Country: US (occurrence: US)
  Receive Date: 20201117
  Receipt Date: 20220210
  Transmission Date: 20220424
  Serious: Yes (Other)
  Sender: FDA-Public Use
  Company Number: US-PFIZER INC-2020453814

PATIENT
  Age: 60 Year
  Sex: Female
  Weight: 61.23 kg

DRUGS (3)
  1. EFFEXOR XR [Suspect]
     Active Substance: VENLAFAXINE HYDROCHLORIDE
     Indication: Depression
     Dosage: 225 MG, 1X/DAY (150 MG + 75 MG)
     Route: 048
  2. EFFEXOR XR [Suspect]
     Active Substance: VENLAFAXINE HYDROCHLORIDE
     Dosage: UNK
  3. EFFEXOR XR [Suspect]
     Active Substance: VENLAFAXINE HYDROCHLORIDE
     Dosage: UNK

REACTIONS (7)
  - Weight decreased [Unknown]
  - Anxiety [Unknown]
  - Nervousness [Unknown]
  - Eating disorder [Unknown]
  - Depression [Unknown]
  - Fear [Unknown]
  - Disturbance in attention [Unknown]
